FAERS Safety Report 7369457-0 (Version None)
Quarter: 2011Q1

REPORT INFORMATION
  Report Type: 
  Country: None (occurrence: None)
  Receive Date: 20110323
  Receipt Date: 20110311
  Transmission Date: 20110831
  Serious: Yes (Hospitalization)
  Sender: FDA-Public Use
  Company Number: US-AMGEN-USASP2011013906

PATIENT
  Age: 61 Year
  Sex: Female

DRUGS (1)
  1. ENBREL [Suspect]
     Indication: RHEUMATOID ARTHRITIS
     Dates: start: 20070301, end: 20100501

REACTIONS (6)
  - HYPOKINESIA [None]
  - SPINAL FUSION SURGERY [None]
  - POST PROCEDURAL OEDEMA [None]
  - POST PROCEDURAL HAEMORRHAGE [None]
  - ASTHENIA [None]
  - RHEUMATOID ARTHRITIS [None]
